FAERS Safety Report 6785131-3 (Version None)
Quarter: 2010Q2

REPORT INFORMATION
  Report Type: 
  Country: None (occurrence: None)
  Receive Date: 20100618
  Receipt Date: 20100603
  Transmission Date: 20101027
  Serious: Yes (Hospitalization)
  Sender: FDA-Public Use
  Company Number: 2010001142

PATIENT
  Age: 75 Year
  Sex: Male
  Weight: 55 kg

DRUGS (9)
  1. ERLOTINIB (ERLOTINIB) (TABLET) (ERLOTINIB) [Suspect]
     Indication: LUNG ADENOCARCINOMA
     Dosage: 150 MG, QD, ORAL
     Route: 048
     Dates: start: 20090908, end: 20090921
  2. ADALAT [Concomitant]
  3. BLOPPRESS (CANDESARTAN CILEXETIL) [Concomitant]
  4. PILSICAINIDE (PILSICAINIDE) [Concomitant]
  5. GRANDAXIN (TOFISOPAM) [Concomitant]
  6. SELBEX (TEPRENONE) [Concomitant]
  7. HARNAL (TAMSULOSIN HYDROCHLORIDE) [Concomitant]
  8. DEPAS (ETIZOLAM) [Concomitant]
  9. LENDORM [Concomitant]

REACTIONS (5)
  - LABORATORY TEST INTERFERENCE [None]
  - LUNG ADENOCARCINOMA [None]
  - MALIGNANT NEOPLASM PROGRESSION [None]
  - PLATELET COUNT DECREASED [None]
  - RASH [None]
